FAERS Safety Report 8304245-X (Version None)
Quarter: 2012Q2

REPORT INFORMATION
  Report Type: 
  Country: None (occurrence: None)
  Receive Date: 20120423
  Receipt Date: 20120412
  Transmission Date: 20120825
  Serious: Yes (Other)
  Sender: FDA-Public Use
  Company Number: PHHY2012US033244

PATIENT
  Age: 42 Year
  Sex: Male

DRUGS (4)
  1. HYDROCORTISONE [Concomitant]
  2. KETOCONAZOLE [Concomitant]
  3. METYRAPONE [Suspect]
     Indication: HYPERCORTICOIDISM
     Dosage: UNK
     Dates: start: 20040101
  4. MITOTANE [Suspect]
     Dosage: UNK
     Dates: start: 20080101

REACTIONS (4)
  - ADRENAL INSUFFICIENCY [None]
  - ADRENAL ATROPHY [None]
  - BLOOD CORTICOTROPHIN INCREASED [None]
  - BLOOD CORTISOL DECREASED [None]
